FAERS Safety Report 25153024 (Version 1)
Quarter: 2025Q2

REPORT INFORMATION
  Report Type: Spontaneous
  Country: CN (occurrence: CN)
  Receive Date: 20250403
  Receipt Date: 20250403
  Transmission Date: 20250717
  Serious: Yes (Life-Threatening, Other)
  Sender: ACCORD
  Company Number: CN-Accord-476850

PATIENT
  Age: 22 Year
  Sex: Female

DRUGS (10)
  1. ETOPOSIDE [Suspect]
     Active Substance: ETOPOSIDE
     Indication: Ewing^s sarcoma
     Dosage: ETOPOSIDE AT 120 MG/M2 FOR FIVE CONSECUTIVE DAYS, ADMINISTERED EVERY THREE WEEKS
  2. CYCLOPHOSPHAMIDE [Suspect]
     Active Substance: CYCLOPHOSPHAMIDE
     Indication: Renal cancer
     Dosage: FIRST DAY OF EACH CYCLE, ADMINISTERED EVERY THREE WEEKS
  3. EPIRUBICIN [Suspect]
     Active Substance: EPIRUBICIN
     Indication: Ewing^s sarcoma
     Dosage: FIRST DAY OF EACH CYCLE, ADMINISTERED EVERY THREE WEEKS
  4. IFOSFAMIDE [Suspect]
     Active Substance: IFOSFAMIDE
     Indication: Ewing^s sarcoma
     Dosage: IFOSFAMIDE AT 2 G/M2 FOR FIVE CONSECUTIVE DAYS, ADMINISTERED EVERY THREE WEEKS
  5. VINCRISTINE [Suspect]
     Active Substance: VINCRISTINE
     Indication: Ewing^s sarcoma
     Dosage: FIRST DAY OF EACH CYCLE, ADMINISTERED EVERY THREE WEEKS
  6. ETOPOSIDE [Suspect]
     Active Substance: ETOPOSIDE
     Indication: Renal cancer
     Dosage: ETOPOSIDE AT 120 MG/M2 FOR FIVE CONSECUTIVE DAYS, ADMINISTERED EVERY THREE WEEKS
  7. EPIRUBICIN [Suspect]
     Active Substance: EPIRUBICIN
     Indication: Renal cancer
     Dosage: FIRST DAY OF EACH CYCLE, ADMINISTERED EVERY THREE WEEKS
  8. VINCRISTINE [Suspect]
     Active Substance: VINCRISTINE
     Indication: Renal cancer
     Dosage: FIRST DAY OF EACH CYCLE, ADMINISTERED EVERY THREE WEEKS
  9. IFOSFAMIDE [Suspect]
     Active Substance: IFOSFAMIDE
     Indication: Renal cancer
     Dosage: IFOSFAMIDE AT 2 G/M2 FOR FIVE CONSECUTIVE DAYS, ADMINISTERED EVERY THREE WEEKS
  10. CYCLOPHOSPHAMIDE [Suspect]
     Active Substance: CYCLOPHOSPHAMIDE
     Indication: Ewing^s sarcoma
     Dosage: FIRST DAY OF EACH CYCLE, ADMINISTERED EVERY THREE WEEKS

REACTIONS (1)
  - Agranulocytosis [Unknown]
